FAERS Safety Report 10854115 (Version 1)
Quarter: 2015Q1

REPORT INFORMATION
  Report Type: Other
  Country: IN (occurrence: IN)
  Receive Date: 20150223
  Receipt Date: 20150223
  Transmission Date: 20150721
  Serious: Yes (Other)
  Sender: FDA-Public Use
  Company Number: IN-MERZ NORTH AMERICA, INC.-15MRZ-00080

PATIENT
  Age: 22 Year
  Sex: Female
  Weight: 48 kg

DRUGS (1)
  1. CUVPOSA [Suspect]
     Active Substance: GLYCOPYRROLATE
     Indication: PREMEDICATION
     Route: 042

REACTIONS (4)
  - Respiratory arrest [Recovered/Resolved]
  - Hypopnoea [None]
  - Tachycardia [None]
  - Apnoeic attack [None]
